FAERS Safety Report 17201513 (Version 1)
Quarter: 2019Q4

REPORT INFORMATION
  Report Type: Spontaneous
  Country: US (occurrence: US)
  Receive Date: 20191203
  Receipt Date: 20191203
  Transmission Date: 20200122
  Serious: Yes (Hospitalization)
  Sender: FDA-Public Use
  Company Number: None

PATIENT
  Age: 69 Year
  Sex: Female

DRUGS (20)
  1. CITRANATAL [Concomitant]
  2. MULT-VIT [Concomitant]
  3. POT CL [Concomitant]
  4. ORPHENADRINE [Concomitant]
     Active Substance: ORPHENADRINE
  5. FOLIC ACID. [Concomitant]
     Active Substance: FOLIC ACID
  6. FUROSEMIDE. [Concomitant]
     Active Substance: FUROSEMIDE
  7. SIMVASTATIN. [Concomitant]
     Active Substance: SIMVASTATIN
  8. VIT PLUS E [Concomitant]
  9. CITALOPRAM [Concomitant]
     Active Substance: CITALOPRAM HYDROBROMIDE
  10. ELIQUIS [Concomitant]
     Active Substance: APIXABAN
  11. VITAMIN D3 [Concomitant]
     Active Substance: CHOLECALCIFEROL
  12. IBANDRONATE [Concomitant]
     Active Substance: IBANDRONATE SODIUM
  13. XELJANZ [Suspect]
     Active Substance: TOFACITINIB CITRATE
     Indication: RHEUMATOID ARTHRITIS
     Route: 048
     Dates: start: 20160825
  14. LEVOTHYROXIN [Concomitant]
     Active Substance: LEVOTHYROXINE
  15. METHOTREXATE. [Concomitant]
     Active Substance: METHOTREXATE
  16. PATOPRAZOLE [Concomitant]
  17. CRUSH VIT C [Concomitant]
  18. K-TAB [Concomitant]
     Active Substance: POTASSIUM CHLORIDE
  19. NEURONTIN [Concomitant]
     Active Substance: GABAPENTIN
  20. PREDNISONE. [Concomitant]
     Active Substance: PREDNISONE

REACTIONS (2)
  - Hip surgery [None]
  - Therapy cessation [None]

NARRATIVE: CASE EVENT DATE: 20191001
